FAERS Safety Report 6094923-8 (Version None)
Quarter: 2009Q1

REPORT INFORMATION
  Report Type: 
  Country: None (occurrence: None)
  Receive Date: 20090227
  Receipt Date: 20090223
  Transmission Date: 20090719
  Serious: Yes (Other)
  Sender: FDA-Public Use
  Company Number: JP-BRISTOL-MYERS SQUIBB COMPANY-14518427

PATIENT

DRUGS (2)
  1. KENACORT [Suspect]
     Route: 014
  2. SODIUM HYALURONATE [Suspect]
     Route: 014

REACTIONS (2)
  - BLOOD PRESSURE DECREASED [None]
  - SHOCK [None]
